FAERS Safety Report 7802696-0 (Version None)
Quarter: 2011Q4

REPORT INFORMATION
  Report Type: 
  Country: None (occurrence: None)
  Receive Date: 20111007
  Receipt Date: 20111003
  Transmission Date: 20120403
  Serious: Yes (Other)
  Sender: FDA-Public Use
  Company Number: PHEH2011US05786

PATIENT
  Sex: Female

DRUGS (6)
  1. CHEMOTHERAPEUTICS [Concomitant]
  2. ZOMETA [Suspect]
  3. COUMADIN [Concomitant]
  4. AMBIEN [Concomitant]
  5. SYNTHROID [Concomitant]
  6. CELEXA [Concomitant]

REACTIONS (1)
  - OSTEONECROSIS OF JAW [None]
